APPROVED DRUG PRODUCT: HEMADY
Active Ingredient: DEXAMETHASONE
Strength: 20MG
Dosage Form/Route: TABLET;ORAL
Application: N211379 | Product #001
Applicant: DEXCEL PHARMA TECHNOLOGIES LTD
Approved: Oct 3, 2019 | RLD: Yes | RS: Yes | Type: RX

PATENTS:
Patent 11304961 | Expires: Dec 18, 2037
Patent 10537585 | Expires: Dec 18, 2037

EXCLUSIVITY:
Code: ODE-271 | Date: Oct 3, 2026